FAERS Safety Report 8093087-9 (Version None)
Quarter: 2012Q1

REPORT INFORMATION
  Report Type: 
  Country: None (occurrence: None)
  Receive Date: 20120128
  Receipt Date: 20110926
  Transmission Date: 20120608
  Serious: No
  Sender: FDA-Public Use
  Company Number: US-ABBOTT-11P-163-0849300-00

PATIENT
  Sex: Male
  Weight: 102.15 kg

DRUGS (11)
  1. ASPIRIN [Concomitant]
     Indication: CORONARY ARTERIAL STENT INSERTION
     Dosage: BABY
  2. HUMIRA [Suspect]
     Indication: RHEUMATOID ARTHRITIS
     Dates: start: 20110501
  3. OMEGA FISH OIL [Concomitant]
     Indication: PRODUCT USED FOR UNKNOWN INDICATION
  4. PLAVIX [Concomitant]
     Indication: CORONARY ARTERIAL STENT INSERTION
  5. METOPROLOL TARTRATE [Concomitant]
     Indication: CORONARY ARTERIAL STENT INSERTION
  6. AMBIEN [Concomitant]
     Indication: PRODUCT USED FOR UNKNOWN INDICATION
  7. SIMVASTATIN [Concomitant]
     Indication: PRODUCT USED FOR UNKNOWN INDICATION
  8. ANDROGEL [Concomitant]
     Indication: BLOOD TESTOSTERONE DECREASED
     Dosage: 1 PACKET A DAY
  9. ZOCOR [Concomitant]
     Indication: BLOOD CHOLESTEROL INCREASED
  10. M.V.I. [Concomitant]
     Indication: PRODUCT USED FOR UNKNOWN INDICATION
  11. NITROGLYCERIN [Concomitant]
     Indication: PRODUCT USED FOR UNKNOWN INDICATION
     Dosage: PRN

REACTIONS (7)
  - INJECTION SITE HAEMATOMA [None]
  - DRUG EFFECT DECREASED [None]
  - MYALGIA [None]
  - INCREASED TENDENCY TO BRUISE [None]
  - PAIN IN EXTREMITY [None]
  - CARPAL TUNNEL SYNDROME [None]
  - MUSCULOSKELETAL STIFFNESS [None]
